FAERS Safety Report 8506630-X (Version None)
Quarter: 2012Q3

REPORT INFORMATION
  Report Type: 
  Country: None (occurrence: None)
  Receive Date: 20120712
  Receipt Date: 20120711
  Transmission Date: 20120928
  Serious: Yes (Other)
  Sender: FDA-Public Use
  Company Number: US-PFIZER INC-2012166927

PATIENT
  Age: 26 Year
  Sex: Female

DRUGS (1)
  1. CHANTIX [Suspect]
     Dosage: UNK
     Dates: start: 20120710

REACTIONS (3)
  - ABNORMAL DREAMS [None]
  - SWOLLEN TONGUE [None]
  - GLOSSODYNIA [None]
